FAERS Safety Report 7511196-7 (Version None)
Quarter: 2011Q2

REPORT INFORMATION
  Report Type: 
  Country: None (occurrence: None)
  Receive Date: 20110531
  Receipt Date: 20110517
  Transmission Date: 20111010
  Serious: Yes (Other)
  Sender: FDA-Public Use
  Company Number: PHHY2011JP42968

PATIENT
  Sex: Male

DRUGS (2)
  1. VOLTAREN [Suspect]
     Dosage: UNK
     Route: 054
  2. ADRENAL HORMONE [Concomitant]

REACTIONS (4)
  - CYANOSIS [None]
  - SHOCK [None]
  - BODY TEMPERATURE DECREASED [None]
  - BLOOD PRESSURE DECREASED [None]
